FAERS Safety Report 17136817 (Version 1)
Quarter: 2019Q4

REPORT INFORMATION
  Report Type: Report from Study
  Country: GB (occurrence: GB)
  Receive Date: 20191210
  Receipt Date: 20191210
  Transmission Date: 20200122
  Serious: Yes (Other)
  Sender: FDA-Public Use
  Company Number: PHHY2015GB107243

PATIENT
  Age: 38 Year
  Sex: Female

DRUGS (1)
  1. GILENYA [Suspect]
     Active Substance: FINGOLIMOD HYDROCHLORIDE
     Indication: MULTIPLE SCLEROSIS
     Dosage: UNK, QD
     Route: 048
     Dates: start: 20140311, end: 201804

REACTIONS (20)
  - Ligament rupture [Unknown]
  - Visual impairment [Unknown]
  - Fatigue [Unknown]
  - Headache [Unknown]
  - Cognitive disorder [Unknown]
  - Dysphagia [Unknown]
  - Alopecia [Unknown]
  - Eyelid ptosis [Unknown]
  - Lymphocyte count decreased [Unknown]
  - Peroneal nerve palsy [Unknown]
  - Micturition urgency [Unknown]
  - Optic neuritis [Recovered/Resolved]
  - Bursitis [Unknown]
  - Back pain [Unknown]
  - Oral herpes [Recovered/Resolved]
  - Eyelid disorder [Unknown]
  - Gait disturbance [Unknown]
  - Tenosynovitis [Unknown]
  - Eye pain [Unknown]
  - Trigeminal neuralgia [Unknown]

NARRATIVE: CASE EVENT DATE: 20150520
